FAERS Safety Report 4540808-5 (Version None)
Quarter: 2004Q4

REPORT INFORMATION
  Report Type: 
  Country: None (occurrence: None)
  Receive Date: 20041229
  Receipt Date: 20041223
  Transmission Date: 20050328
  Serious: Yes (Hospitalization)
  Sender: FDA-Public Use
  Company Number: ES-MERCK-0412ESP00040

PATIENT
  Age: 80 Year
  Sex: Female

DRUGS (6)
  1. FOSAMAX [Suspect]
     Route: 048
     Dates: end: 20040403
  2. ASPIRIN [Suspect]
     Route: 048
     Dates: end: 20040403
  3. ACETAMINOPHEN [Concomitant]
     Route: 048
  4. LACTULOSE [Concomitant]
     Route: 048
  5. FLUVOXAMINE MALEATE [Concomitant]
     Route: 048
  6. CARBIDOPA AND LEVODOPA [Concomitant]
     Route: 048

REACTIONS (2)
  - GASTROINTESTINAL HAEMORRHAGE [None]
  - HAEMATEMESIS [None]
